FAERS Safety Report 5409827-0 (Version None)
Quarter: 2007Q3

REPORT INFORMATION
  Report Type: 
  Country: None (occurrence: None)
  Receive Date: 20070807
  Receipt Date: 20070725
  Transmission Date: 20080115
  Serious: Yes (Death, Life-Threatening)
  Sender: FDA-Public Use
  Company Number: 2007JP003505

PATIENT
  Age: 41 Year
  Sex: Female

DRUGS (7)
  1. PROGRAF [Suspect]
     Indication: MYASTHENIA GRAVIS
     Dosage: 3 MG, UID/QD, ORAL
     Route: 048
     Dates: start: 19990101
  2. MYTELASE [Concomitant]
  3. PREDNISOLONE [Concomitant]
  4. ATROPINE SULFATE [Concomitant]
  5. GASTER TABLET [Concomitant]
  6. SELBEX (TEPRENONE) [Concomitant]
  7. BIOFERMIN (STREPTOCOCCUS FAECALIS, LACTOBACILLUS ACIDOPHILUS, BACILLUS [Concomitant]

REACTIONS (6)
  - GRAFT VERSUS HOST DISEASE [None]
  - MALIGNANT NEOPLASM PROGRESSION [None]
  - METASTASIS [None]
  - RESPIRATORY FAILURE [None]
  - THYMOMA [None]
  - THYMOMA MALIGNANT RECURRENT [None]
